FAERS Safety Report 4763134-8 (Version None)
Quarter: 2005Q3

REPORT INFORMATION
  Report Type: 
  Country: None (occurrence: None)
  Receive Date: 20050826
  Receipt Date: 20041027
  Transmission Date: 20060218
  Serious: Yes (Other)
  Sender: FDA-Public Use
  Company Number: USA-2004-0014923

PATIENT
  Age: 47 Year
  Sex: Female

DRUGS (10)
  1. OXYCONTIN [Suspect]
     Indication: PAIN
     Dosage: 20 MG, TID, ORAL
     Route: 048
  2. OXYIR CAPSULES [Concomitant]
  3. BACLOFEN [Concomitant]
  4. ELAVIL [Concomitant]
  5. GABITRIL [Concomitant]
  6. TORADOL [Concomitant]
  7. ZANAFLEX [Concomitant]
  8. ZOLOFT [Concomitant]
  9. CELEBREX [Concomitant]
  10. PAXIL [Concomitant]

REACTIONS (21)
  - ANXIETY [None]
  - ASTHENIA [None]
  - BACK PAIN [None]
  - CONSTIPATION [None]
  - DELUSIONAL DISORDER, UNSPECIFIED TYPE [None]
  - DEPRESSION [None]
  - DRUG DEPENDENCE [None]
  - DRUG WITHDRAWAL SYNDROME [None]
  - FATIGUE [None]
  - INCREASED APPETITE [None]
  - INSOMNIA [None]
  - MUSCULOSKELETAL DISCOMFORT [None]
  - NECK PAIN [None]
  - OBSESSIVE-COMPULSIVE DISORDER [None]
  - PAIN [None]
  - PAIN IN EXTREMITY [None]
  - PARANOIA [None]
  - RADICULOPATHY [None]
  - SEBORRHOEA [None]
  - TOOTHACHE [None]
  - WEIGHT INCREASED [None]
